FAERS Safety Report 22000592 (Version 1)
Quarter: 2023Q1

REPORT INFORMATION
  Report Type: Spontaneous
  Country: US (occurrence: US)
  Receive Date: 20230216
  Receipt Date: 20230216
  Transmission Date: 20230418
  Serious: No
  Sender: FDA-Public Use
  Company Number: US-AMGEN-USASP2023024612

PATIENT
  Age: 47 Year
  Sex: Male

DRUGS (1)
  1. XGEVA [Suspect]
     Active Substance: DENOSUMAB
     Indication: Renal cell carcinoma stage IV
     Dosage: 120 MILLIGRAM, Q4WK
     Route: 065
     Dates: start: 20220920, end: 20230201

REACTIONS (2)
  - Blood calcium decreased [Unknown]
  - Blood magnesium decreased [Unknown]
